FAERS Safety Report 16397640 (Version 2)
Quarter: 2019Q4

REPORT INFORMATION
  Report Type: Report from Study
  Country: US (occurrence: US)
  Receive Date: 20190606
  Receipt Date: 20191230
  Transmission Date: 20200122
  Serious: Yes (Hospitalization)
  Sender: FDA-Public Use
  Company Number: PHEH2019US023136

PATIENT
  Age: 72 Year
  Sex: Male

DRUGS (1)
  1. ENTRESTO [Suspect]
     Active Substance: SACUBITRIL\VALSARTAN
     Indication: CARDIAC FAILURE CHRONIC
     Dosage: 1 DF (24 MG OF SACUBITRIL/ 26 MG OF VALSARTAN), BID
     Route: 048
     Dates: start: 201903

REACTIONS (10)
  - Pain [Unknown]
  - Feeling abnormal [Unknown]
  - Cough [Not Recovered/Not Resolved]
  - Dyspnoea [Unknown]
  - Device related infection [Recovering/Resolving]
  - Personality change [Unknown]
  - Mood altered [Unknown]
  - Fatigue [Unknown]
  - Extrasystoles [Unknown]
  - Fall [Not Recovered/Not Resolved]

NARRATIVE: CASE EVENT DATE: 201903
